FAERS Safety Report 23674045 (Version 1)
Quarter: 2024Q1

REPORT INFORMATION
  Report Type: Spontaneous
  Country: ES (occurrence: None)
  Receive Date: 20240326
  Receipt Date: 20240326
  Transmission Date: 20240409
  Serious: Yes (Death, Hospitalization, Other)
  Sender: FDA-Public Use
  Company Number: 2024A071368

PATIENT
  Age: 23989 Day
  Sex: Female

DRUGS (1)
  1. LYNPARZA [Suspect]
     Active Substance: OLAPARIB
     Indication: Ovarian cancer
     Dosage: 2 PILLS (300 MG) IN THE MORNING AND 2 PILLS (300 MG) AT NIGHT.150.0MG UNKNOWN
     Route: 048

REACTIONS (5)
  - Peritonitis [Unknown]
  - Haemorrhage [Fatal]
  - Hypovolaemic shock [Fatal]
  - Lung infiltration [Fatal]
  - Acute respiratory distress syndrome [Fatal]

NARRATIVE: CASE EVENT DATE: 20220501
